FAERS Safety Report 7651866-3 (Version None)
Quarter: 2011Q3

REPORT INFORMATION
  Report Type: 
  Country: None (occurrence: None)
  Receive Date: 20110803
  Receipt Date: 20110728
  Transmission Date: 20111222
  Serious: Yes (Hospitalization)
  Sender: FDA-Public Use
  Company Number: US-BIOGENIDEC-2011BI026268

PATIENT
  Age: 59 Year
  Sex: Female

DRUGS (1)
  1. AVONEX [Suspect]
     Indication: MULTIPLE SCLEROSIS
     Route: 030
     Dates: start: 19980901

REACTIONS (7)
  - DYSPNOEA [None]
  - INTERVERTEBRAL DISC PROTRUSION [None]
  - AMNESIA [None]
  - CARDIAC PACEMAKER INSERTION [None]
  - ANAESTHETIC COMPLICATION [None]
  - LOSS OF CONSCIOUSNESS [None]
  - PNEUMOTHORAX [None]
